FAERS Safety Report 8433283-1 (Version None)
Quarter: 2012Q2

REPORT INFORMATION
  Report Type: 
  Country: None (occurrence: None)
  Receive Date: 20120323
  Receipt Date: 20110715
  Transmission Date: 20120825
  Serious: Yes (Hospitalization)
  Sender: FDA-Public Use
  Company Number: 163-21880-11070666

PATIENT
  Age: 70 Year
  Sex: Male

DRUGS (11)
  1. NIFEDIPINE [Concomitant]
  2. LOVAZA [Concomitant]
  3. LISINOPRIL [Concomitant]
  4. HUMULIN (NOVOLIN 20/80) [Concomitant]
  5. REVLIMID [Suspect]
     Indication: MULTIPLE MYELOMA
     Dosage: 25 MG, DAILY X 21 DAYS, PO
     Route: 048
     Dates: start: 20110415
  6. COUMADIN [Concomitant]
  7. METFORMIN HCL [Concomitant]
  8. PRAVASTATIN [Concomitant]
  9. LEVOTHYROXINE SODIUM [Concomitant]
  10. FENOFIBRATE [Concomitant]
  11. CITALOPRAM HYDROBROMIDE [Concomitant]

REACTIONS (1)
  - PNEUMONIA VIRAL [None]
